FAERS Safety Report 16895137 (Version 1)
Quarter: 2019Q4

REPORT INFORMATION
  Report Type: Spontaneous
  Country: US (occurrence: US)
  Receive Date: 20191008
  Receipt Date: 20191008
  Transmission Date: 20200122
  Serious: No
  Sender: FDA-Public Use
  Company Number: US-INDIVIOR US-INDV-119651-2019

PATIENT
  Sex: Male

DRUGS (2)
  1. SUBOXONE [Suspect]
     Active Substance: BUPRENORPHINE HYDROCHLORIDE\NALOXONE HYDROCHLORIDE
     Indication: DRUG DEPENDENCE
     Dosage: 8 MILLIGRAM, BID
     Route: 060
     Dates: start: 2018
  2. SUBOXONE [Suspect]
     Active Substance: BUPRENORPHINE HYDROCHLORIDE\NALOXONE HYDROCHLORIDE
     Indication: DRUG DEPENDENCE
     Dosage: 8 MILLIGRAM, BID
     Route: 060

REACTIONS (8)
  - Therapy cessation [Recovered/Resolved]
  - Malaise [Recovered/Resolved]
  - Oral disorder [Unknown]
  - Inappropriate schedule of product administration [Recovered/Resolved]
  - Ill-defined disorder [Not Recovered/Not Resolved]
  - Therapeutic product effect incomplete [Unknown]
  - Oral administration complication [Recovered/Resolved]
  - Drug dependence [Unknown]
